FAERS Safety Report 19277254 (Version 2)
Quarter: 2021Q2

REPORT INFORMATION
  Report Type: Spontaneous
  Country: RU (occurrence: RU)
  Receive Date: 20210519
  Receipt Date: 20210530
  Transmission Date: 20210717
  Serious: Yes (Other)
  Sender: FDA-Public Use
  Company Number: RU-CELLTRION INC.-2021RU006676

PATIENT

DRUGS (10)
  1. PREDNISOLONE. [Suspect]
     Active Substance: PREDNISOLONE
     Indication: GANGRENE
  2. CLOPIDOGREL [Suspect]
     Active Substance: CLOPIDOGREL BISULFATE
     Indication: PROPHYLAXIS
  3. INFLIXIMAB (UNKNOWN) [Suspect]
     Active Substance: INFLIXIMAB
     Indication: GANGRENE
  4. PREDNISOLONE. [Suspect]
     Active Substance: PREDNISOLONE
     Indication: PROPHYLAXIS
     Dosage: 1.8 MG/KG
  5. TRENTAL [Suspect]
     Active Substance: PENTOXIFYLLINE
     Indication: PROPHYLAXIS
  6. BRENTUXIMAB [Concomitant]
     Active Substance: BRENTUXIMAB VEDOTIN
     Dosage: 3 COURSES
     Dates: start: 202006
  7. INFLIXIMAB (UNKNOWN) [Suspect]
     Active Substance: INFLIXIMAB
     Indication: PROPHYLAXIS
     Dosage: 360 MG
  8. CLOPIDOGREL [Suspect]
     Active Substance: CLOPIDOGREL BISULFATE
     Indication: GANGRENE
  9. PEMBROLIZUMAB. [Concomitant]
     Active Substance: PEMBROLIZUMAB
  10. TRENTAL [Suspect]
     Active Substance: PENTOXIFYLLINE
     Indication: GANGRENE

REACTIONS (4)
  - Dry gangrene [Unknown]
  - Drug effective for unapproved indication [Unknown]
  - Disease progression [Unknown]
  - Off label use [Unknown]
